FAERS Safety Report 4829471-3 (Version None)
Quarter: 2005Q4

REPORT INFORMATION
  Report Type: 
  Country: None (occurrence: None)
  Receive Date: 20051116
  Receipt Date: 20051104
  Transmission Date: 20060501
  Serious: Yes (Death, Other)
  Sender: FDA-Public Use
  Company Number: AU-MERCK-0511AUS00037

PATIENT
  Age: 87 Year
  Sex: Male

DRUGS (1)
  1. FOSAMAX [Suspect]
     Route: 048

REACTIONS (2)
  - DEATH [None]
  - GASTROINTESTINAL DISORDER [None]
